FAERS Safety Report 8258277-0 (Version None)
Quarter: 2012Q2

REPORT INFORMATION
  Report Type: 
  Country: None (occurrence: None)
  Receive Date: 20120404
  Receipt Date: 20120321
  Transmission Date: 20120825
  Serious: Yes (Other)
  Sender: FDA-Public Use
  Company Number: DK-CELGENEUS-044-C5013-12022633

PATIENT
  Sex: Female
  Weight: 48.2 kg

DRUGS (6)
  1. ACETAMINOPHEN [Concomitant]
     Indication: PAIN
     Dosage: 3000 MILLIGRAM
     Route: 048
     Dates: start: 20120103
  2. ACETYLSALICYLIC ACID SRT [Concomitant]
     Indication: THROMBOSIS PROPHYLAXIS
     Dosage: 75 MILLIGRAM
     Route: 048
     Dates: start: 20110913
  3. UNIKALK [Concomitant]
     Indication: VITAMIN SUPPLEMENTATION
     Dosage: 1 TABLET
     Route: 048
     Dates: start: 20111206
  4. UNIKALK [Concomitant]
  5. LENALIDOMIDE [Suspect]
     Dosage: 2.5 MILLIGRAM
     Route: 048
     Dates: start: 20110516
  6. LENALIDOMIDE [Suspect]
     Dosage: 5 MILLIGRAM
     Route: 048
     Dates: start: 20120103, end: 20120116

REACTIONS (1)
  - LUNG SQUAMOUS CELL CARCINOMA STAGE UNSPECIFIED [None]
